FAERS Safety Report 23257020 (Version 2)
Quarter: 2023Q4

REPORT INFORMATION
  Report Type: Spontaneous
  Country: SK (occurrence: SK)
  Receive Date: 20231204
  Receipt Date: 20231218
  Transmission Date: 20240110
  Serious: Yes (Other)
  Sender: FDA-Public Use
  Company Number: SK-AMGEN-SVKSP2023212946

PATIENT
  Age: 63 Year
  Sex: Male

DRUGS (6)
  1. KYPROLIS [Suspect]
     Active Substance: CARFILZOMIB
     Indication: Product used for unknown indication
     Dosage: 40 MILLIGRAM (MG/M^2)
     Route: 065
     Dates: start: 20230206
  2. KYPROLIS [Suspect]
     Active Substance: CARFILZOMIB
     Dosage: 60 MILLIGRAM (MG/M^2)
     Route: 065
     Dates: start: 2023
  3. KYPROLIS [Suspect]
     Active Substance: CARFILZOMIB
     Dosage: UNK REDUCED THE DOSAGE
     Route: 065
     Dates: start: 2023
  4. LENALIDOMIDE [Concomitant]
     Active Substance: LENALIDOMIDE
     Dosage: UNK
     Route: 065
     Dates: start: 20230206
  5. LENALIDOMIDE [Concomitant]
     Active Substance: LENALIDOMIDE
     Dosage: UNK (REDUCED THE DOSAGE)
     Route: 065
     Dates: start: 2023
  6. DEXAMETHASONE [Concomitant]
     Active Substance: DEXAMETHASONE
     Dosage: UNK
     Route: 065
     Dates: start: 20230206

REACTIONS (3)
  - Intervertebral discitis [Unknown]
  - COVID-19 [Unknown]
  - Respiratory tract infection [Unknown]

NARRATIVE: CASE EVENT DATE: 20230101
